FAERS Safety Report 20663810 (Version 2)
Quarter: 2022Q3

REPORT INFORMATION
  Report Type: Spontaneous
  Country: CA (occurrence: CA)
  Receive Date: 20220401
  Receipt Date: 20220713
  Transmission Date: 20221027
  Serious: Yes (Death, Hospitalization, Other)
  Sender: FDA-Public Use
  Company Number: CA-GLAXOSMITHKLINE-CA2022GSK058367

PATIENT

DRUGS (2)
  1. ZANTAC [Suspect]
     Active Substance: RANITIDINE HYDROCHLORIDE
     Indication: Dyspepsia
     Dosage: UNK, QD
     Route: 065
     Dates: start: 1980
  2. ZANTAC [Suspect]
     Active Substance: RANITIDINE HYDROCHLORIDE
     Indication: Gastrooesophageal reflux disease

REACTIONS (13)
  - Death [Fatal]
  - Rectal cancer [Unknown]
  - Rectal adenocarcinoma [Unknown]
  - Rectal haemorrhage [Unknown]
  - Rectal cancer stage III [Unknown]
  - Colorectal adenocarcinoma [Unknown]
  - Metastases to liver [Unknown]
  - Metastases to lung [Unknown]
  - Colorectal cancer metastatic [Unknown]
  - Rectal cancer metastatic [Unknown]
  - Rectal dysplasia [Unknown]
  - Rectal lesion [Unknown]
  - Colorectal adenoma [Unknown]
